FAERS Safety Report 8031777-4 (Version None)
Quarter: 2012Q1

REPORT INFORMATION
  Report Type: 
  Country: None (occurrence: None)
  Receive Date: 20120109
  Receipt Date: 20111230
  Transmission Date: 20120608
  Serious: Yes (Other)
  Sender: FDA-Public Use
  Company Number: US-ASTRAZENECA-2012SE00332

PATIENT
  Age: 66 Year
  Sex: Female

DRUGS (3)
  1. TAMOXIFEN CITRATE [Concomitant]
  2. NEXIUM [Suspect]
     Route: 048
  3. EFFEXOR [Concomitant]

REACTIONS (1)
  - BREAST CANCER [None]
